FAERS Safety Report 16625016 (Version 1)
Quarter: 2019Q3

REPORT INFORMATION
  Report Type: Spontaneous
  Country: NO (occurrence: NO)
  Receive Date: 20190724
  Receipt Date: 20190724
  Transmission Date: 20191004
  Serious: Yes (Hospitalization)
  Sender: FDA-Public Use
  Company Number: NO-PFIZER INC-2019312480

PATIENT
  Age: 65 Year
  Sex: Female

DRUGS (9)
  1. FERROMAX [Concomitant]
     Indication: ANAEMIA
     Dosage: 65 MG, 1X/DAY
     Route: 048
     Dates: start: 20181129
  2. SOMAC [Concomitant]
     Active Substance: PANTOPRAZOLE SODIUM
     Dosage: 40 MG 1X/DAY
     Route: 048
     Dates: start: 20180823
  3. METOPROLOL SANDOZ [Concomitant]
     Active Substance: METOPROLOL
     Indication: CARDIAC FAILURE
     Dosage: 50 MG 2X/DAY
     Route: 048
  4. XELJANZ [Suspect]
     Active Substance: TOFACITINIB CITRATE
     Indication: RHEUMATOID ARTHRITIS
     Dosage: 5 MG, 2X/DAY
     Route: 048
     Dates: start: 20181115, end: 201904
  5. PREDNISOLON [Concomitant]
     Active Substance: PREDNISOLONE
     Indication: RHEUMATOID ARTHRITIS
     Dosage: 1-2 TABLETS DAILY.
     Route: 048
     Dates: start: 20181109
  6. TOBRASONE [Concomitant]
     Indication: EYE INFECTION
     Dosage: 1 DF, AS NEEDED
     Route: 047
  7. ALENDRONAT [Concomitant]
     Active Substance: ALENDRONATE SODIUM
     Indication: OSTEOPOROSIS
     Dosage: 70 MG, WEEKLY
     Route: 048
     Dates: start: 20180424
  8. PARACET [Concomitant]
     Active Substance: ACETAMINOPHEN
     Indication: PAIN
     Dosage: 1 GRAM UP TO 3 TIMES DAILY.
     Route: 048
     Dates: start: 20180624
  9. TRIATEC [Concomitant]
     Indication: CARDIAC FAILURE
     Dosage: 5 MG
     Route: 048
     Dates: start: 20180113

REACTIONS (5)
  - Renal failure [Recovered/Resolved]
  - Atrial flutter [Unknown]
  - Pneumonia [Recovered/Resolved]
  - Herpes zoster [Recovered/Resolved]
  - Sepsis [Unknown]

NARRATIVE: CASE EVENT DATE: 201904
